FAERS Safety Report 8401719-8 (Version None)
Quarter: 2012Q2

REPORT INFORMATION
  Report Type: 
  Country: None (occurrence: None)
  Receive Date: 20120601
  Receipt Date: 20120524
  Transmission Date: 20120825
  Serious: Yes (Hospitalization)
  Sender: FDA-Public Use
  Company Number: US-BAYER-201027372NA

PATIENT
  Age: 21 Year
  Sex: Female
  Weight: 58.957 kg

DRUGS (16)
  1. YASMIN [Suspect]
     Dosage: UNK UNK, QD
     Route: 048
     Dates: start: 20071101, end: 20090801
  2. CELEBREX [Concomitant]
     Dosage: 200 MG, UNK
  3. LEVOTHYROXINE SODIUM [Concomitant]
     Dosage: 100 MCG/24HR, UNK
  4. BENZONATATE [Concomitant]
     Dosage: 100 MG, UNK
  5. METFORMIN HCL [Concomitant]
     Dosage: 1000 MG, UNK
  6. POTASSIUM CHLORIDE [Concomitant]
     Dosage: 20 MEQ, UNK
  7. FLEXERIL [Concomitant]
     Dosage: 5 MG, TID
     Route: 048
  8. YAZ [Suspect]
     Dosage: UNK UNK, QD
     Route: 048
     Dates: start: 20071101, end: 20090801
  9. FLUCONAZOLE [Concomitant]
     Dosage: 150 MG, UNK
  10. DIOVAN HCT [Concomitant]
     Dosage: 160 MG, UNK
  11. ACETAMINOPHEN [Concomitant]
     Dosage: UNK
     Dates: end: 20090724
  12. AMOXICILLIN [Concomitant]
     Dosage: 875 MG, UNK
  13. MEPERIDINE HCL [Concomitant]
     Dosage: 50 MG, Q4HR
     Route: 048
  14. PROMETHAZINE [Concomitant]
     Dosage: 25 MG, UNK
     Route: 048
  15. BORIC ACID [Concomitant]
     Dosage: 600 MG, UNK
  16. FUROSEMIDE [Concomitant]
     Dosage: 20 MG, UNK

REACTIONS (6)
  - PAIN [None]
  - FEAR [None]
  - ANHEDONIA [None]
  - ANXIETY [None]
  - PULMONARY EMBOLISM [None]
  - INJURY [None]
